FAERS Safety Report 8607025 (Version 3)
Quarter: 2014Q1

REPORT INFORMATION
  Report Type: Spontaneous
  Country: US (occurrence: US)
  Receive Date: 20120611
  Receipt Date: 20140123
  Transmission Date: 20141002
  Serious: Yes (Disabling)
  Sender: FDA-Public Use
  Company Number: US-ASTRAZENECA-2012SE35542

PATIENT
  Age: 52 Year
  Sex: Female
  Weight: 68 kg

DRUGS (10)
  1. NEXIUM [Suspect]
     Indication: GASTROOESOPHAGEAL REFLUX DISEASE
     Dosage: ONCE A DAY
     Route: 048
     Dates: start: 20030217, end: 20060629
  2. NEXIUM [Suspect]
     Indication: GASTROOESOPHAGEAL REFLUX DISEASE
     Route: 048
     Dates: start: 20030217
  3. PEPTO [Concomitant]
  4. TUMS [Concomitant]
     Dosage: WHEN NEEDED
  5. MYLANTA [Concomitant]
     Dates: start: 1990
  6. ROLAIDS [Concomitant]
     Dates: start: 1990
  7. ALKA SELTZER [Concomitant]
     Dates: start: 1990
  8. ESTRADIOL [Concomitant]
  9. MULTIVITAMINS [Concomitant]
  10. CALCIUM [Concomitant]

REACTIONS (17)
  - Osteoarthritis [Unknown]
  - Migraine [Unknown]
  - Liver disorder [Unknown]
  - Fibromyalgia [Unknown]
  - Pain [Unknown]
  - Osteoporosis [Unknown]
  - Wrist fracture [Unknown]
  - Multiple fractures [Unknown]
  - Fall [Unknown]
  - Ligament rupture [Unknown]
  - Lower limb fracture [Unknown]
  - Chest pain [Unknown]
  - Arthritis [Unknown]
  - Lung disorder [Unknown]
  - Rheumatoid arthritis [Unknown]
  - Vitamin D deficiency [Unknown]
  - Intervertebral disc degeneration [Unknown]
